FAERS Safety Report 6264564-8 (Version None)
Quarter: 2009Q3

REPORT INFORMATION
  Report Type: 
  Country: None (occurrence: None)
  Receive Date: 20090708
  Receipt Date: 20090626
  Transmission Date: 20100115
  Serious: Yes (Hospitalization, Other)
  Sender: FDA-Public Use
  Company Number: 2009JP001634

PATIENT
  Age: 74 Year
  Sex: Male

DRUGS (6)
  1. PROTOPIC [Suspect]
     Indication: DERMATITIS ATOPIC
     Dosage: 0.1%, TOPICAL
     Route: 061
     Dates: start: 20020626, end: 20090321
  2. PASTARON (GLYCYRRHIZIC ACID DIPOTASSIUM, TOCOPHERYL ACETATE) [Concomitant]
  3. PROPADERM [Concomitant]
  4. EURAX [Concomitant]
  5. PANDEL (HYDROCORTISONE PROBUTAT) [Concomitant]
  6. ATOLANT (NETICONAZOLE HYDROCHLORIDE) [Concomitant]

REACTIONS (1)
  - ANAPLASTIC LARGE CELL LYMPHOMA T- AND NULL-CELL TYPES [None]
